FAERS Safety Report 4576376-1 (Version None)
Quarter: 2005Q1

REPORT INFORMATION
  Report Type: 
  Country: None (occurrence: None)
  Receive Date: 20050207
  Receipt Date: 20050125
  Transmission Date: 20050727
  Serious: Yes (Other)
  Sender: FDA-Public Use
  Company Number: 2004097793

PATIENT
  Age: 80 Year
  Sex: Male

DRUGS (5)
  1. CELEBREX [Suspect]
     Dosage: ORAL
     Route: 048
  2. VALSARTAN (VALSARTAN) [Suspect]
     Dosage: 80 MG (80 MG DAILY) ORAL
     Route: 048
     Dates: start: 20030127, end: 20030203
  3. ALLOPURINOL [Suspect]
  4. OMEPRAZOLE [Suspect]
     Dosage: ORAL
     Route: 048
  5. PRAVASTATIN SODIUM [Suspect]
     Dosage: ORAL
     Route: 048

REACTIONS (4)
  - DRUG INTERACTION [None]
  - DYSPNOEA [None]
  - ORTHOSTATIC HYPOTENSION [None]
  - PALPITATIONS [None]
